FAERS Safety Report 8565223 (Version 3)
Quarter: 2013Q4

REPORT INFORMATION
  Report Type: Spontaneous
  Country: US (occurrence: US)
  Receive Date: 20120516
  Receipt Date: 20131120
  Transmission Date: 20140711
  Serious: Yes (Hospitalization, Other)
  Sender: FDA-Public Use
  Company Number: US-BAYER-2012-046753

PATIENT
  Age: 39 Year
  Sex: Female
  Weight: 81.63 kg

DRUGS (6)
  1. YASMIN [Suspect]
     Indication: CONTRACEPTION
     Dosage: UNK
     Dates: start: 200604, end: 200904
  2. YASMIN [Suspect]
     Indication: CONTRACEPTION
     Dosage: UNK
     Dates: start: 200604, end: 201005
  3. OCELLA [Suspect]
     Dosage: UNK
     Dates: start: 200604, end: 201005
  4. OCELLA [Suspect]
     Dosage: UNK
     Dates: start: 200905, end: 201005
  5. OMEPRAZOLE [Concomitant]
     Dosage: UNK
     Dates: start: 2010
  6. CLARITIN [Concomitant]
     Dosage: UNK
     Dates: start: 20100511

REACTIONS (9)
  - Cholelithiasis [None]
  - Bile duct stone [None]
  - Cholecystitis chronic [None]
  - Injury [None]
  - Pain [None]
  - Anxiety [None]
  - Anhedonia [None]
  - Abdominal pain [None]
  - Nausea [None]
